FAERS Safety Report 8078340-7 (Version None)
Quarter: 2012Q1

REPORT INFORMATION
  Report Type: 
  Country: None (occurrence: None)
  Receive Date: 20120123
  Receipt Date: 20120109
  Transmission Date: 20120608
  Serious: Yes (Death)
  Sender: FDA-Public Use
  Company Number: JPI-P-005925

PATIENT
  Age: 48 Year
  Sex: Female

DRUGS (4)
  1. XYREM [Suspect]
     Indication: INSOMNIA
     Dosage: 4.5;6;9 GM (2.25GM; 3GM; 4.5 GM, 2 IN 1 D), ORAL
     Route: 048
     Dates: start: 20070501
  2. XYREM [Suspect]
     Indication: INSOMNIA
     Dosage: 4.5;6;9 GM (2.25GM; 3GM; 4.5 GM, 2 IN 1 D), ORAL
     Route: 048
     Dates: start: 20071113, end: 20090109
  3. XYREM [Suspect]
     Indication: INSOMNIA
     Dosage: 4.5;6;9 GM (2.25GM; 3GM; 4.5 GM, 2 IN 1 D), ORAL
     Route: 048
     Dates: start: 20070425, end: 20070501
  4. UNSPECIFIED DRUGS, MEDICAMENTS, AND BIOLOGICAL SUBSTANCES [Suspect]
     Indication: PRODUCT USED FOR UNKNOWN INDICATION
     Dates: end: 20090109

REACTIONS (1)
  - ACCIDENTAL POISONING [None]
